FAERS Safety Report 13116707 (Version 4)
Quarter: 2017Q1

REPORT INFORMATION
  Report Type: Spontaneous
  Country: PL (occurrence: PL)
  Receive Date: 20170116
  Receipt Date: 20170307
  Transmission Date: 20170428
  Serious: Yes (Hospitalization, Other)
  Sender: FDA-Public Use
  Company Number: PL-ASTELLAS-2017US001370

PATIENT
  Age: 44 Year
  Sex: Female

DRUGS (6)
  1. TORECAN [Concomitant]
     Active Substance: THIETHYLPERAZINE MALATE
     Indication: VOMITING
  2. TORECAN [Concomitant]
     Active Substance: THIETHYLPERAZINE MALATE
     Indication: ARNOLD-CHIARI MALFORMATION
  3. NUROFEN FORTE [Concomitant]
     Indication: PAIN
     Dosage: UNK UNK, UNKNOWN FREQ.
     Route: 065
  4. BETMIGA [Suspect]
     Active Substance: MIRABEGRON
     Indication: NEUROGENIC BLADDER
     Dosage: 50 MG, EVERYDAY ONE TABLET
     Route: 048
     Dates: start: 201511, end: 201512
  5. BETMIGA [Suspect]
     Active Substance: MIRABEGRON
     Dosage: 50 MG, EVERY SECOND DAY ONE TABLET
     Route: 048
     Dates: start: 201611
  6. TORECAN [Concomitant]
     Active Substance: THIETHYLPERAZINE MALATE
     Indication: DIZZINESS
     Route: 065

REACTIONS (11)
  - Skin odour abnormal [Unknown]
  - Haematuria [Recovered/Resolved]
  - Bladder pain [Not Recovered/Not Resolved]
  - Urethral pain [Recovered/Resolved]
  - Urinary retention [Recovering/Resolving]
  - Pain [Recovered/Resolved]
  - Dysgeusia [Recovered/Resolved]
  - Treatment noncompliance [Unknown]
  - Haematuria [Recovered/Resolved]
  - Asthenia [Recovered/Resolved]
  - Off label use [Unknown]

NARRATIVE: CASE EVENT DATE: 201511
